FAERS Safety Report 9632386 (Version 1)
Quarter: 2013Q4

REPORT INFORMATION
  Report Type: Spontaneous
  Country: DE (occurrence: None)
  Receive Date: 20131016
  Receipt Date: 20131016
  Transmission Date: 20140711
  Serious: Yes (Hospitalization)
  Sender: FDA-Public Use
  Company Number: ACO_39024_2013

PATIENT
  Age: 52 Year
  Sex: Female

DRUGS (2)
  1. FAMPYRA [Suspect]
     Indication: GAIT DISTURBANCE
     Route: 048
     Dates: start: 20120101
  2. AVONEX (INTERFERON BETA-1A) [Concomitant]

REACTIONS (2)
  - Upper limb fracture [None]
  - Fall [None]
